FAERS Safety Report 10248092 (Version 2)
Quarter: 2014Q2

REPORT INFORMATION
  Report Type: Report from Study
  Country: AU (occurrence: AU)
  Receive Date: 20140619
  Receipt Date: 20140626
  Transmission Date: 20141212
  Serious: Yes (Other)
  Sender: FDA-Public Use
  Company Number: AU-VERTEX PHARMACEUTICALS INC-2014-002781

PATIENT
  Age: 62 Year
  Sex: Male
  Weight: 65 kg

DRUGS (3)
  1. TELAPREVIR [Suspect]
     Indication: HEPATITIS C
     Dosage: 1125 MG, BID
     Route: 065
     Dates: start: 20140602, end: 20140604
  2. PEGINTERFERON ALFA-2A [Suspect]
     Indication: HEPATITIS C
     Dosage: 1 DF, QW
     Route: 058
     Dates: start: 20140602, end: 20140604
  3. RIBAVIRIN [Suspect]
     Indication: HEPATITIS C
     Dosage: DOSAGE FORM: UNSPECIFIED, 1000 DAILY
     Route: 065
     Dates: start: 20140602, end: 20140604

REACTIONS (4)
  - Rash pruritic [Recovering/Resolving]
  - Mouth ulceration [Recovering/Resolving]
  - Oral pain [Recovering/Resolving]
  - Malaise [Recovering/Resolving]
